FAERS Safety Report 9348730 (Version 1)
Quarter: 2013Q2

REPORT INFORMATION
  Report Type: Spontaneous
  Country: US (occurrence: US)
  Receive Date: 20130614
  Receipt Date: 20130614
  Transmission Date: 20140414
  Serious: No
  Sender: FDA-Public Use
  Company Number: US-GLAXOSMITHKLINE-A1003230A

PATIENT
  Age: 51 Year
  Sex: Female
  Weight: 80.5 kg

DRUGS (33)
  1. TREXIMET [Suspect]
     Indication: MIGRAINE
     Dosage: 1TAB AS REQUIRED
     Route: 048
     Dates: start: 20121122
  2. ALEVE [Suspect]
     Dosage: 2CAP PER DAY
  3. CHOLESTYRAMINE [Concomitant]
  4. HERBAL SUPPLEMENT [Concomitant]
  5. ACTIGALL [Concomitant]
     Dosage: 300MG THREE TIMES PER DAY
  6. CREON [Concomitant]
  7. SINGULAIR [Concomitant]
     Dosage: 10MG PER DAY
  8. CLARITIN [Concomitant]
     Dosage: 10MG PER DAY
  9. CYPROHEPTADINE [Concomitant]
     Indication: MIGRAINE
     Dosage: 12MG AT NIGHT
  10. DULERA [Concomitant]
     Dosage: 2PUFF TWICE PER DAY
  11. FLUTICASONE [Concomitant]
  12. NYSTATIN [Concomitant]
  13. THYROID [Concomitant]
  14. HYDROCORTISONE [Concomitant]
  15. PREGNENOLONE [Concomitant]
  16. DHEA [Concomitant]
  17. VIVELLE ESTROGEN PATCH [Concomitant]
     Indication: MIGRAINE
  18. TESTOSTERONE [Concomitant]
  19. PROGESTERONE TABLETS [Concomitant]
     Indication: MIGRAINE
  20. GABA [Concomitant]
     Indication: MIGRAINE
  21. NEUROTIN [Concomitant]
     Indication: MIGRAINE
  22. SUMATRIPTAN [Concomitant]
     Indication: MIGRAINE
  23. IMITREX [Concomitant]
     Indication: MIGRAINE
  24. MIDRIN [Concomitant]
     Indication: MIGRAINE
  25. ACYCLOVIR [Concomitant]
  26. WARFARIN [Concomitant]
  27. ASPIRIN [Concomitant]
  28. CLOBETASOL PROPIONATE FOAM [Concomitant]
  29. DOXYCYCLINE [Concomitant]
  30. AZITHROMYCIN [Concomitant]
  31. CAFFEINE [Concomitant]
     Indication: MIGRAINE
  32. NALTREXONE [Concomitant]
     Indication: MIGRAINE
  33. SUPPLEMENT VITAMINS [Concomitant]

REACTIONS (2)
  - Drug effect decreased [Recovered/Resolved]
  - Abdominal discomfort [Unknown]
